FAERS Safety Report 9003155 (Version 1)
Quarter: 2013Q1

REPORT INFORMATION
  Report Type: Spontaneous
  Country: US (occurrence: US)
  Receive Date: 20130108
  Receipt Date: 20130108
  Transmission Date: 20140127
  Serious: Yes (Death)
  Sender: FDA-Public Use
  Company Number: US-BAYER-2013-002099

PATIENT
  Age: 39 Year
  Sex: Male

DRUGS (3)
  1. DIPHENHYDRAMINE HYDROCHLORIDE [Suspect]
     Route: 048
  2. DOXYLAMINE [Suspect]
     Route: 048
  3. DEXTROMETHORPHAN [Suspect]
     Route: 048

REACTIONS (1)
  - Intentional drug misuse [Fatal]
